FAERS Safety Report 17728367 (Version 1)
Quarter: 2020Q2

REPORT INFORMATION
  Report Type: Spontaneous
  Country: US (occurrence: US)
  Receive Date: 20200430
  Receipt Date: 20200430
  Transmission Date: 20200714
  Serious: No
  Sender: FDA-Public Use
  Company Number: US-SA-2020SA107976

PATIENT
  Sex: Female

DRUGS (9)
  1. VITAMIN D NOS [Concomitant]
     Active Substance: VITAMIN D NOS
  2. LYRICA [Concomitant]
     Active Substance: PREGABALIN
  3. NOVOLOG [Concomitant]
     Active Substance: INSULIN ASPART
  4. SIMVASTATIN. [Concomitant]
     Active Substance: SIMVASTATIN
  5. KEVZARA [Suspect]
     Active Substance: SARILUMAB
     Dosage: 200 MG, QOW
     Route: 058
     Dates: start: 2019
  6. NEXIUM [Concomitant]
     Active Substance: ESOMEPRAZOLE MAGNESIUM
  7. GLIPIZIDE. [Concomitant]
     Active Substance: GLIPIZIDE
  8. LEVEMIR [Concomitant]
     Active Substance: INSULIN DETEMIR
  9. LISINOPRIL. [Concomitant]
     Active Substance: LISINOPRIL

REACTIONS (3)
  - Dizziness [Not Recovered/Not Resolved]
  - Gait disturbance [Not Recovered/Not Resolved]
  - Arthralgia [Not Recovered/Not Resolved]
